FAERS Safety Report 20031587 (Version 1)
Quarter: 2021Q4

REPORT INFORMATION
  Report Type: Spontaneous
  Country: FR (occurrence: FR)
  Receive Date: 20211103
  Receipt Date: 20211103
  Transmission Date: 20220303
  Serious: Yes (Hospitalization, Congenital Anomaly, Other)
  Sender: FDA-Public Use
  Company Number: FR-ABBVIE-21K-056-4141633-00

PATIENT
  Sex: Male
  Weight: 3.52 kg

DRUGS (1)
  1. VALPROATE SODIUM [Suspect]
     Active Substance: VALPROATE SODIUM
     Indication: Maternal exposure timing unspecified
     Route: 064

REACTIONS (58)
  - Ketonuria [Unknown]
  - Meningitis enteroviral [Unknown]
  - Angina pectoris [Unknown]
  - Bronchiolitis [Unknown]
  - Hypotelorism of orbit [Unknown]
  - Dysmorphism [Unknown]
  - Craniosynostosis [Unknown]
  - Skull malformation [Unknown]
  - Brachycephaly [Unknown]
  - Joint laxity [Unknown]
  - Congenital hand malformation [Unknown]
  - Coordination abnormal [Unknown]
  - Developmental delay [Unknown]
  - Foetal anticonvulsant syndrome [Unknown]
  - Developmental coordination disorder [Unknown]
  - Dysgraphia [Unknown]
  - Lip disorder [Unknown]
  - Prominent epicanthal folds [Unknown]
  - Head deformity [Unknown]
  - Speech disorder developmental [Unknown]
  - Memory impairment [Unknown]
  - Learning disability [Unknown]
  - Hypotonia [Unknown]
  - Cafe au lait spots [Unknown]
  - Fine motor skill dysfunction [Unknown]
  - Microcephaly [Unknown]
  - Congenital limb hyperextension [Unknown]
  - Congenital nose malformation [Unknown]
  - Joint hyperextension [Unknown]
  - Hyperacusis [Unknown]
  - Vomiting [Unknown]
  - Seizure [Unknown]
  - Emotional disorder [Unknown]
  - Pasteurella infection [Unknown]
  - Visual impairment [Unknown]
  - Dysphagia [Unknown]
  - Anxiety [Unknown]
  - Frustration tolerance decreased [Unknown]
  - Malocclusion [Unknown]
  - Affect lability [Unknown]
  - Binocular eye movement disorder [Unknown]
  - Skin discolouration [Unknown]
  - Astigmatism [Unknown]
  - Hypermetropia [Unknown]
  - Fatigue [Unknown]
  - Skin hyperpigmentation [Unknown]
  - Hypopigmentation of eyelid [Unknown]
  - Nasopharyngitis [Unknown]
  - Rhinitis [Unknown]
  - Ear infection [Unknown]
  - Pharyngitis [Unknown]
  - Anger [Unknown]
  - Impulsive behaviour [Unknown]
  - Psychomotor hyperactivity [Unknown]
  - Disturbance in attention [Unknown]
  - Executive dysfunction [Unknown]
  - Headache [Unknown]
  - Foetal exposure during pregnancy [Unknown]
